FAERS Safety Report 17109999 (Version 3)
Quarter: 2020Q1

REPORT INFORMATION
  Report Type: Spontaneous
  Country: DE (occurrence: DE)
  Receive Date: 20191204
  Receipt Date: 20200203
  Transmission Date: 20200409
  Serious: Yes (Other)
  Sender: FDA-Public Use
  Company Number: NVSC2019DE054506

PATIENT
  Age: 44 Year
  Sex: Male

DRUGS (3)
  1. NEVANAC [Suspect]
     Active Substance: NEPAFENAC
     Indication: EYE OEDEMA
     Dosage: 1 GTT, QD (1 DROP PER EYE / 3MG/ML)
     Route: 047
     Dates: start: 20190718, end: 20191126
  2. DORZOLAMID/TIMOLOL [Concomitant]
     Active Substance: DORZOLAMIDE HYDROCHLORIDE\TIMOLOL MALEATE
     Indication: OCULAR HYPERTENSION
     Dosage: UNK
     Route: 065
     Dates: start: 20190226
  3. LUTEIN [Concomitant]
     Active Substance: LUTEIN
     Indication: MACULOPATHY
     Dosage: UNK
     Route: 065
     Dates: start: 20180508

REACTIONS (3)
  - Product use in unapproved indication [Unknown]
  - Cystoid macular oedema [Not Recovered/Not Resolved]
  - Visual acuity reduced [Unknown]

NARRATIVE: CASE EVENT DATE: 20190718
